FAERS Safety Report 4669055-3 (Version None)
Quarter: 2005Q2

REPORT INFORMATION
  Report Type: 
  Country: None (occurrence: None)
  Receive Date: 20050523
  Receipt Date: 20050308
  Transmission Date: 20051028
  Serious: Yes (Congenital Anomaly)
  Sender: FDA-Public Use
  Company Number: GR-NOVOPROD-242800

PATIENT
  Sex: Female
  Weight: 4 kg

DRUGS (6)
  1. NOVORAPID PENFILL 3.0 ML [Suspect]
     Indication: DIABETES MELLITUS INSULIN-DEPENDENT
     Dosage: 24 IU, QD
     Route: 015
     Dates: start: 20040728
  2. FEROFOLIC [Concomitant]
     Route: 015
     Dates: start: 20040903
  3. AMOXICILLIN [Concomitant]
     Route: 015
     Dates: start: 20041007, end: 20041011
  4. FOLIC ACID [Concomitant]
     Route: 015
  5. PROTAPHANE [Concomitant]
     Indication: DIABETES MELLITUS INSULIN-DEPENDENT
     Dosage: 76 IU, QD
     Route: 015
     Dates: start: 20040728
  6. PROTAPHANE [Concomitant]
     Dosage: 90 IU, QD
     Route: 015

REACTIONS (3)
  - APGAR SCORE LOW [None]
  - CONGENITAL BRAIN DAMAGE [None]
  - DRUG EXPOSURE DURING PREGNANCY [None]
